FAERS Safety Report 7732252-4 (Version None)
Quarter: 2011Q3

REPORT INFORMATION
  Report Type: 
  Country: None (occurrence: None)
  Receive Date: 20110906
  Receipt Date: 20110826
  Transmission Date: 20111222
  Serious: Yes (Other)
  Sender: FDA-Public Use
  Company Number: US-ASTRAZENECA-2011SE51573

PATIENT

DRUGS (2)
  1. ANALOPRIL [Concomitant]
  2. CRESTOR [Suspect]
     Route: 048

REACTIONS (3)
  - MOOD ALTERED [None]
  - DEPRESSION [None]
  - SUICIDAL IDEATION [None]
